FAERS Safety Report 14853981 (Version 6)
Quarter: 2018Q3

REPORT INFORMATION
  Report Type: Spontaneous
  Country: IT (occurrence: IT)
  Receive Date: 20180507
  Receipt Date: 20180809
  Transmission Date: 20181010
  Serious: Yes (Other)
  Sender: FDA-Public Use
  Company Number: IT-PFIZER INC-2018182379

PATIENT
  Age: 66 Year
  Sex: Male

DRUGS (4)
  1. FOTEMUSTINE [Suspect]
     Active Substance: FOTEMUSTINE
     Indication: BONE MARROW CONDITIONING REGIMEN
     Dosage: UNK (FEAM)
     Dates: start: 201608
  2. CYTARABINE. [Suspect]
     Active Substance: CYTARABINE
     Indication: BONE MARROW CONDITIONING REGIMEN
     Dosage: UNK (FEAM)
     Dates: start: 201608
  3. MELPHALAN. [Suspect]
     Active Substance: MELPHALAN
     Indication: BONE MARROW CONDITIONING REGIMEN
     Dosage: UNK (FEAM)
     Dates: start: 201608
  4. ETOPOSIDE. [Suspect]
     Active Substance: ETOPOSIDE
     Indication: BONE MARROW CONDITIONING REGIMEN
     Dosage: UNK (FEAM)
     Dates: start: 201608

REACTIONS (2)
  - Bronchopulmonary aspergillosis [Recovered/Resolved]
  - Mucosal inflammation [Recovered/Resolved]
